FAERS Safety Report 7496772-2 (Version None)
Quarter: 2011Q2

REPORT INFORMATION
  Report Type: 
  Country: None (occurrence: None)
  Receive Date: 20110523
  Receipt Date: 20110516
  Transmission Date: 20111010
  Serious: Yes (Other)
  Sender: FDA-Public Use
  Company Number: B0719821A

PATIENT
  Age: 4 Year
  Sex: Female
  Weight: 19.5 kg

DRUGS (2)
  1. LAMOTRIGINE [Suspect]
     Dosage: 2MG PER DAY
     Route: 048
  2. VALPROATE SODIUM [Concomitant]
     Dosage: 600MG PER DAY
     Route: 048

REACTIONS (5)
  - DRUG ERUPTION [None]
  - RASH [None]
  - COAGULOPATHY [None]
  - PLATELET COUNT DECREASED [None]
  - PYREXIA [None]
